FAERS Safety Report 6086176-1 (Version None)
Quarter: 2009Q1

REPORT INFORMATION
  Report Type: 
  Country: None (occurrence: None)
  Receive Date: 20090220
  Receipt Date: 20090213
  Transmission Date: 20090719
  Serious: Yes (Hospitalization)
  Sender: FDA-Public Use
  Company Number: GR-ABBOTT-09P-066-0557212-00

PATIENT
  Age: 74 Year
  Sex: Male
  Weight: 66 kg

DRUGS (12)
  1. HUMIRA [Suspect]
     Indication: RHEUMATOID ARTHRITIS
     Route: 058
     Dates: start: 20060620
  2. ZINADOL [Concomitant]
     Indication: ANTIBIOTIC PROPHYLAXIS
     Route: 048
     Dates: start: 20080916, end: 20080919
  3. MEDROL [Concomitant]
     Indication: RHEUMATOID ARTHRITIS
     Route: 048
     Dates: start: 19930101
  4. APOTEL [Concomitant]
     Indication: ANALGESIA
     Route: 048
     Dates: start: 20080916, end: 20080919
  5. INNOHEP [Concomitant]
     Indication: ANTICOAGULANT THERAPY
     Route: 058
     Dates: start: 20080916, end: 20080921
  6. NEUROBION [Concomitant]
     Indication: ANALGESIA
     Route: 048
     Dates: start: 20080917, end: 20081101
  7. METHOTREXATE [Concomitant]
     Indication: RHEUMATOID ARTHRITIS
     Route: 048
  8. ARAVA [Concomitant]
     Indication: RHEUMATOID ARTHRITIS
     Dosage: 20MG DAILY
     Route: 048
  9. FILICINE [Concomitant]
     Indication: RHEUMATOID ARTHRITIS
     Route: 048
  10. BONIVA [Concomitant]
     Indication: OSTEOPOROSIS
     Route: 048
     Dates: start: 20060620
  11. IDEOS [Concomitant]
     Indication: OSTEOPOROSIS
     Dosage: 1 TAB DAILY
     Route: 048
     Dates: start: 20060620
  12. CO-APROVEL [Concomitant]
     Indication: HYPERTENSION
     Dosage: 1 TAB DAILY
     Route: 048
     Dates: start: 20081101

REACTIONS (1)
  - SYNOVIAL CYST [None]
